FAERS Safety Report 5389165-5 (Version None)
Quarter: 2007Q3

REPORT INFORMATION
  Report Type: 
  Country: None (occurrence: None)
  Receive Date: 20070717
  Receipt Date: 20070709
  Transmission Date: 20080115
  Serious: Yes (Hospitalization)
  Sender: FDA-Public Use
  Company Number: SE-BRISTOL-MYERS SQUIBB COMPANY-13845755

PATIENT
  Age: 65 Year
  Sex: Male

DRUGS (9)
  1. CETUXIMAB [Suspect]
     Indication: RECTAL CANCER
     Route: 042
     Dates: start: 20070321
  2. OXALIPLATIN [Suspect]
     Indication: RECTAL CANCER
     Route: 042
     Dates: start: 20070321
  3. CAPECITABINE [Suspect]
     Indication: RECTAL CANCER
     Dates: start: 20070321
  4. RADIOTHERAPY [Suspect]
     Indication: RECTAL CANCER
  5. ANGIOTENSIN CONVERTING ENZYME [Concomitant]
  6. LASIX [Concomitant]
  7. TROMBYL [Concomitant]
  8. LOMIR [Concomitant]
  9. ATENOLOL [Concomitant]

REACTIONS (1)
  - ILEUS [None]
